FAERS Safety Report 13595042 (Version 1)
Quarter: 2017Q2

REPORT INFORMATION
  Report Type: Spontaneous
  Country: GR (occurrence: GR)
  Receive Date: 20170531
  Receipt Date: 20170531
  Transmission Date: 20170830
  Serious: Yes (Other)
  Sender: FDA-Public Use
  Company Number: ALCN2017GR003580

PATIENT
  Age: 73 Year
  Sex: Female

DRUGS (2)
  1. SIMBRINZA [Suspect]
     Active Substance: BRIMONIDINE TARTRATE\BRINZOLAMIDE
     Indication: GLAUCOMA
     Route: 047
  2. TEMSERIN [Concomitant]
     Indication: GLAUCOMA
     Route: 065

REACTIONS (1)
  - Hypothermia [Unknown]
